FAERS Safety Report 5145533-8 (Version None)
Quarter: 2006Q4

REPORT INFORMATION
  Report Type: 
  Country: None (occurrence: None)
  Receive Date: 20061101
  Receipt Date: 20061017
  Transmission Date: 20070319
  Serious: Yes (Hospitalization)
  Sender: FDA-Public Use
  Company Number: 2006SP003823

PATIENT
  Age: 66 Year
  Sex: Male
  Weight: 76.8 kg

DRUGS (8)
  1. XOPENEX HFA (LEVALBUTEROL TARTRATE) INHALATION AEROSOL (45 MG/3ML) [Suspect]
     Indication: CHRONIC OBSTRUCTIVE PULMONARY DISEASE
     Dosage: 90 MG/3ML; PRN; INHALATION
     Route: 055
     Dates: start: 20060901
  2. PRILOSEC [Concomitant]
  3. OXYGEN [Concomitant]
  4. ASMANEX TWISTHALER [Concomitant]
  5. ATROVENT [Concomitant]
  6. LACTOBACILLUS ACIDOPHILUS [Concomitant]
  7. .. [Concomitant]
  8. VITAMINS [Concomitant]

REACTIONS (4)
  - ADRENAL DISORDER [None]
  - ANGINA UNSTABLE [None]
  - CORONARY ARTERY DISEASE [None]
  - MYOCARDIAL ISCHAEMIA [None]
